FAERS Safety Report 17372098 (Version 2)
Quarter: 2020Q1

REPORT INFORMATION
  Report Type: Spontaneous
  Country: US (occurrence: US)
  Receive Date: 20200205
  Receipt Date: 20200304
  Transmission Date: 20200409
  Serious: No
  Sender: FDA-Public Use
  Company Number: US-ASTRAZENECA-2020SE08096

PATIENT
  Age: 35 Year
  Sex: Female

DRUGS (1)
  1. FASENRA [Suspect]
     Active Substance: BENRALIZUMAB
     Indication: ASTHMA
     Dosage: LOADING DOSE OF THE FASENRA, AND CURRENTLY SHE IS ON THE MAINTENANCE DOSE OF 1 FASENRA INJECTION ...
     Route: 058

REACTIONS (4)
  - Headache [Unknown]
  - Drug ineffective [Unknown]
  - Asthma [Unknown]
  - Dyspnoea [Unknown]
